FAERS Safety Report 8785998 (Version 1)
Quarter: 2012Q4

REPORT INFORMATION
  Report Type: Report from Study
  Country: US (occurrence: US)
  Receive Date: 20120914
  Receipt Date: 20120914
  Transmission Date: 20130627
  Serious: No
  Sender: FDA-Public Use
  Company Number: US-VERTEX PHARMACEUTICAL INC.-AE-2012-011588

PATIENT
  Age: 30 Year
  Sex: Male

DRUGS (4)
  1. INCIVEK [Suspect]
     Indication: HEPATITIS C
     Route: 048
  2. OMEPRAZOLE [Concomitant]
  3. MULTI MAX [Concomitant]
  4. B12-ACTIVE CHW [Concomitant]

REACTIONS (1)
  - Rash [Unknown]
